FAERS Safety Report 4276899-9 (Version None)
Quarter: 2004Q1

REPORT INFORMATION
  Report Type: 
  Country: None (occurrence: None)
  Receive Date: 20040120
  Receipt Date: 20031128
  Transmission Date: 20041129
  Serious: Yes (Hospitalization)
  Sender: FDA-Public Use
  Company Number: 2002AP03781

PATIENT
  Age: 52 Year
  Sex: Female

DRUGS (5)
  1. SEROQUEL [Suspect]
     Indication: PSYCHOTIC DISORDER
     Dosage: 200 MG TID PO
     Route: 048
     Dates: start: 20010928, end: 20020922
  2. OLANZAPINE [Suspect]
     Dates: end: 20010928
  3. CIPRAMIL [Concomitant]
  4. HALOPERIDOL [Concomitant]
  5. TEMAZEPAM [Concomitant]

REACTIONS (4)
  - ACUTE MYOCARDIAL INFARCTION [None]
  - ACUTE PSYCHOSIS [None]
  - CARDIOMYOPATHY [None]
  - DEPRESSED LEVEL OF CONSCIOUSNESS [None]
